FAERS Safety Report 9539202 (Version 1)
Quarter: 2013Q2

REPORT INFORMATION
  Report Type: Spontaneous
  Country: US (occurrence: None)
  Receive Date: 20130521
  Receipt Date: 20130521
  Transmission Date: 20140414
  Serious: No
  Sender: FDA-Public Use
  Company Number: 1000043224

PATIENT
  Age: 52 Year
  Sex: Male

DRUGS (3)
  1. TUDORZA PRESSAIR [Suspect]
     Indication: CHRONIC OBSTRUCTIVE PULMONARY DISEASE
     Dosage: 800MCG (400 MCG, 2 IN 1 D), RESPIRATORY (INHALATION)
     Route: 055
     Dates: start: 20130225, end: 20130306
  2. DALIRESP [Suspect]
     Indication: CHRONIC OBSTRUCTIVE PULMONARY DISEASE
     Dosage: 500MCG (500 MCG, 1 IN 1 D), ORAL
     Route: 048
     Dates: start: 20130225, end: 20130306
  3. ALBUTEROL [Concomitant]

REACTIONS (5)
  - Tremor [None]
  - Nausea [None]
  - Headache [None]
  - Dizziness [None]
  - Back pain [None]
